FAERS Safety Report 7628310-5 (Version None)
Quarter: 2011Q3

REPORT INFORMATION
  Report Type: 
  Country: None (occurrence: None)
  Receive Date: 20110714
  Receipt Date: 20110630
  Transmission Date: 20111222
  Serious: Yes (Hospitalization)
  Sender: FDA-Public Use
  Company Number: 2011PV000037

PATIENT
  Age: 50 Year
  Sex: Male
  Weight: 101 kg

DRUGS (1)
  1. DEPOCYT [Suspect]
     Indication: METASTASES TO MENINGES
     Dosage: 50 MG, QOW, INTH
     Route: 037
     Dates: start: 20110517, end: 20110531

REACTIONS (1)
  - LEUKOPENIA [None]
